FAERS Safety Report 10681880 (Version 3)
Quarter: 2015Q1

REPORT INFORMATION
  Report Type: Report from Study
  Country: CA (occurrence: CA)
  Receive Date: 20141230
  Receipt Date: 20150325
  Transmission Date: 20150720
  Serious: Yes (Other)
  Sender: FDA-Public Use
  Company Number: CA-BEH-2014047616

PATIENT
  Sex: Male

DRUGS (2)
  1. FIBRINOGEN [Suspect]
     Active Substance: FIBRINOGEN HUMAN
     Indication: INJURY
     Dosage: RAPID PUSH OVER 6 MINUTES (1 GRAM PER MINUTE).
     Route: 042
     Dates: start: 20141115
  2. FIBRINOGEN [Suspect]
     Active Substance: FIBRINOGEN HUMAN
     Indication: RESUSCITATION
     Dosage: RAPID PUSH OVER 6 MINUTES (1 GRAM PER MINUTE).
     Route: 042
     Dates: start: 20141115

REACTIONS (1)
  - Electrocardiogram T wave inversion [Recovered/Resolved]

NARRATIVE: CASE EVENT DATE: 20141117
